FAERS Safety Report 5732084-2 (Version None)
Quarter: 2008Q2

REPORT INFORMATION
  Report Type: 
  Country: None (occurrence: None)
  Receive Date: 20080506
  Receipt Date: 20080429
  Transmission Date: 20081010
  Serious: Yes (Hospitalization)
  Sender: FDA-Public Use
  Company Number: PL-JNJFOC-20080401837

PATIENT
  Age: 67 Year
  Sex: Female

DRUGS (12)
  1. DECITABINE (DECITABINE) LYOPHILIZED POWDER [Suspect]
     Indication: ACUTE MYELOID LEUKAEMIA
     Dosage: 34.5 MG, IN 1 DAY, INTRAVENOUS
     Route: 042
     Dates: start: 20070224, end: 20080425
  2. CIPROFLOXACIN (CIPROFLOXACIN) UNSPECIFIED [Concomitant]
  3. AMOXYCILLIN AND CLAVULANIC ACID (AMOXICILLIN) UNSPECIFIED [Concomitant]
  4. BENZYDAMINE HYDROCHLORIDE (BENZYDAMINE HYDROCHLORIDE) [Concomitant]
  5. ACYCLOVIR (ACICLOVIR) UNSPECIFIED [Concomitant]
  6. TAZOBACTAM [Concomitant]
  7. PENIMEPICYCLINE (PENIMEPICYCLINE) UNSPECIFIED [Concomitant]
  8. FLUCONAZOLE (FLUCONAZOLE) UNSPECIFIED [Concomitant]
  9. FUROSEMIDE (FUROSEMIDE) UNSPECIFIED [Concomitant]
  10. AMICACINE (AMIKACIN) UNSPECIFIED [Concomitant]
  11. ENOXAPARIN SODIUM (HEPARIN-FRACTION, SODIUM SALT) UNSPECIFIED [Concomitant]
  12. CALCIUM ACETATE (CALCIUM ACETATE) UNSPECIFIED [Concomitant]

REACTIONS (9)
  - GENITAL HERPES [None]
  - HAEMATOCRIT DECREASED [None]
  - HAEMOGLOBIN DECREASED [None]
  - HERPES SIMPLEX [None]
  - OEDEMA PERIPHERAL [None]
  - PLATELET COUNT DECREASED [None]
  - RED BLOOD CELL COUNT DECREASED [None]
  - SOFT TISSUE INFLAMMATION [None]
  - WHITE BLOOD CELL COUNT DECREASED [None]
